APPROVED DRUG PRODUCT: MOTOFEN
Active Ingredient: ATROPINE SULFATE; DIFENOXIN HYDROCHLORIDE
Strength: 0.025MG;1MG
Dosage Form/Route: TABLET;ORAL
Application: N017744 | Product #002
Applicant: LEGACY PHARMA INC
Approved: Approved Prior to Jan 1, 1982 | RLD: Yes | RS: Yes | Type: RX